FAERS Safety Report 5770770-9 (Version None)
Quarter: 2008Q2

REPORT INFORMATION
  Report Type: 
  Country: None (occurrence: None)
  Receive Date: 20080613
  Receipt Date: 20080512
  Transmission Date: 20081010
  Serious: No
  Sender: FDA-Public Use
  Company Number: US-ABBOTT-08P-163-0451633-00

PATIENT
  Sex: Female
  Weight: 86.26 kg

DRUGS (6)
  1. HUMIRA [Suspect]
     Indication: CROHN'S DISEASE
     Route: 058
     Dates: start: 20080502, end: 20080510
  2. COLAZOL [Concomitant]
     Indication: CROHN'S DISEASE
     Route: 048
     Dates: start: 20080201
  3. COLAZOL [Concomitant]
     Indication: COLITIS
  4. PREDNISONE TAB [Concomitant]
     Indication: CROHN'S DISEASE
     Route: 048
     Dates: start: 20080201
  5. PREDNISONE TAB [Concomitant]
     Indication: COLITIS
  6. MESALAMINE [Concomitant]
     Indication: DRUG USE FOR UNKNOWN INDICATION
     Route: 048
     Dates: end: 20080201

REACTIONS (2)
  - HYPOAESTHESIA [None]
  - PARAESTHESIA [None]
